FAERS Safety Report 4340764-9 (Version None)
Quarter: 2004Q2

REPORT INFORMATION
  Report Type: 
  Country: None (occurrence: None)
  Receive Date: 20040419
  Receipt Date: 20040413
  Transmission Date: 20050107
  Serious: Yes (Death)
  Sender: FDA-Public Use
  Company Number: PHFR2004GB01739

PATIENT
  Age: 21 Year
  Sex: Male
  Weight: 70 kg

DRUGS (2)
  1. CARBAMAZEPINE [Suspect]
     Indication: MYOCLONIC EPILEPSY
     Dosage: 1200 MG/DAY
     Route: 048
     Dates: start: 20031111, end: 20040313
  2. LAMOTRIGINE [Suspect]
     Indication: EPILEPSY
     Dosage: 600 MG/DAY
     Route: 048
     Dates: end: 20040313

REACTIONS (1)
  - SUDDEN DEATH [None]
